FAERS Safety Report 9846005 (Version 1)
Quarter: 2013Q4

REPORT INFORMATION
  Report Type: Spontaneous
  Country: US (occurrence: None)
  Receive Date: 20131219
  Receipt Date: 20131219
  Transmission Date: 20140711
  Serious: Yes (Disabling)
  Sender: FDA-Public Use
  Company Number: 163-20785-13040245

PATIENT
  Age: 75 Year
  Sex: Female

DRUGS (7)
  1. THALOMID (THALIDOMIDE) (100 MILLIGRAM, CAPSULES) [Suspect]
     Indication: PLASMA CELL MYELOMA
     Route: 048
     Dates: start: 201006
  2. VELCADE(BORTEZOMIB)(INJECTION) [Concomitant]
  3. SYNTHROID(LEVOTHYROXINE SODIUM)(UNKNOWN) [Concomitant]
  4. METFORMIN(METFORMIN)(TABLETS) [Concomitant]
  5. LISINOPRIL(LISINOPRIL)(UNKNOWN) [Concomitant]
  6. PAXIL(PAROXETINE HYDROCHLORIDE) (UNKNOWN) [Concomitant]
  7. ASPIRIN(ACETYLSALICYLIC ACID)(UNKNOWN) [Concomitant]

REACTIONS (2)
  - Hypoaesthesia [None]
  - Plasma cell myeloma [None]
